FAERS Safety Report 6239787-4 (Version None)
Quarter: 2009Q2

REPORT INFORMATION
  Report Type: 
  Country: None (occurrence: None)
  Receive Date: 20090623
  Receipt Date: 20090615
  Transmission Date: 20091009
  Serious: Yes (Other)
  Sender: FDA-Public Use
  Company Number: IN-BRISTOL-MYERS SQUIBB COMPANY-14664932

PATIENT
  Age: 12 Year
  Sex: Male

DRUGS (1)
  1. AMPHOTERICIN B [Suspect]
     Indication: ANTIFUNGAL TREATMENT

REACTIONS (4)
  - GENERALISED OEDEMA [None]
  - HAEMATURIA [None]
  - HYPOKALAEMIA [None]
  - RENAL TUBULAR DISORDER [None]
